FAERS Safety Report 4331077-X (Version None)
Quarter: 2004Q1

REPORT INFORMATION
  Report Type: 
  Country: None (occurrence: None)
  Receive Date: 20040331
  Receipt Date: 20040323
  Transmission Date: 20041129
  Serious: No
  Sender: FDA-Public Use
  Company Number: 2003AP01862

PATIENT
  Age: 21 Year
  Sex: Female

DRUGS (2)
  1. BUPIVACAINE [Suspect]
     Indication: EPIDURAL ANAESTHESIA
     Dosage: 2.5 MG DAILY IT
     Route: 038
  2. FENTANYL [Suspect]
     Indication: EPIDURAL ANAESTHESIA
     Dosage: 5.25 G DAILY IT
     Route: 038

REACTIONS (6)
  - APGAR SCORE LOW [None]
  - BRADYCARDIA FOETAL [None]
  - CAESAREAN SECTION [None]
  - COMPLICATIONS OF MATERNAL EXPOSURE TO THERAPEUTIC DRUGS [None]
  - DRUG INTERACTION [None]
  - MATERNAL DRUGS AFFECTING FOETUS [None]
